FAERS Safety Report 26086152 (Version 1)
Quarter: 2025Q4

REPORT INFORMATION
  Report Type: Spontaneous
  Country: GB (occurrence: GB)
  Receive Date: 20251125
  Receipt Date: 20251125
  Transmission Date: 20260117
  Serious: Yes (Life-Threatening, Other)
  Sender: SANDOZ
  Company Number: None

PATIENT
  Age: 42 Year
  Sex: Male

DRUGS (1)
  1. CLARITHROMYCIN [Suspect]
     Active Substance: CLARITHROMYCIN
     Indication: Adverse drug reaction
     Dosage: 500MG TWICE A DAY EVERY 12 HOURS ONE TABLET
     Route: 065
     Dates: start: 20251117, end: 20251119

REACTIONS (15)
  - Diabetes mellitus inadequate control [Not Recovered/Not Resolved]
  - Blood pressure increased [Recovered/Resolved with Sequelae]
  - Chest discomfort [Not Recovered/Not Resolved]
  - Haemoptysis [Recovered/Resolved with Sequelae]
  - Skin exfoliation [Recovering/Resolving]
  - Medication error [Unknown]
  - Vision blurred [Not Recovered/Not Resolved]
  - Emotional distress [Not Recovered/Not Resolved]
  - Blister [Not Recovered/Not Resolved]
  - Epistaxis [Recovered/Resolved]
  - Dysgeusia [Recovering/Resolving]
  - Fatigue [Not Recovered/Not Resolved]
  - Tinnitus [Not Recovered/Not Resolved]
  - Dyspnoea [Not Recovered/Not Resolved]
  - Headache [Recovering/Resolving]

NARRATIVE: CASE EVENT DATE: 20251118
